FAERS Safety Report 5768329-2 (Version None)
Quarter: 2008Q2

REPORT INFORMATION
  Report Type: 
  Country: None (occurrence: None)
  Receive Date: 20080612
  Receipt Date: 20080407
  Transmission Date: 20081010
  Serious: No
  Sender: FDA-Public Use
  Company Number: US-ABBOTT-08P-163-0435958-00

PATIENT
  Sex: Female
  Weight: 52.21 kg

DRUGS (2)
  1. HUMIRA [Suspect]
     Indication: PSORIATIC ARTHROPATHY
     Route: 058
     Dates: start: 20070601
  2. HUMIRA [Suspect]
     Indication: PSORIASIS

REACTIONS (5)
  - BACK PAIN [None]
  - BREAKTHROUGH PAIN [None]
  - HEADACHE [None]
  - JOINT STIFFNESS [None]
  - PAIN IN EXTREMITY [None]
